FAERS Safety Report 5951100-6 (Version None)
Quarter: 2008Q4

REPORT INFORMATION
  Report Type: 
  Country: None (occurrence: None)
  Receive Date: 20081112
  Receipt Date: 20081112
  Transmission Date: 20090506
  Serious: Yes (Death, Hospitalization)
  Sender: FDA-Public Use
  Company Number: None

PATIENT
  Age: 83 Year
  Sex: Female

DRUGS (1)
  1. AMIODARONE HCL [Suspect]
     Indication: HEPATIC CIRRHOSIS
     Dosage: 200MG DAILY PO
     Route: 048
     Dates: start: 20070220, end: 20080306

REACTIONS (4)
  - ANOREXIA [None]
  - ASCITES [None]
  - HEPATIC CIRRHOSIS [None]
  - THERAPEUTIC AGENT TOXICITY [None]
